FAERS Safety Report 16821189 (Version 1)
Quarter: 2019Q3

REPORT INFORMATION
  Report Type: Spontaneous
  Country: US (occurrence: US)
  Receive Date: 20190918
  Receipt Date: 20190918
  Transmission Date: 20191005
  Serious: No
  Sender: FDA-Public Use
  Company Number: US-ALIMERA SCIENCES INC.-US-IL-2018-004111

PATIENT
  Sex: Female

DRUGS (2)
  1. ILUVIEN [Suspect]
     Active Substance: FLUOCINOLONE ACETONIDE
     Dosage: 0.25 ?G, QD -UNKNOWN EYE
     Route: 031
     Dates: start: 201807
  2. ILUVIEN [Suspect]
     Active Substance: FLUOCINOLONE ACETONIDE
     Indication: PRODUCT USED FOR UNKNOWN INDICATION
     Dosage: 0.25 ?G, QD - RIGHT EYE
     Route: 031
     Dates: start: 20180130

REACTIONS (3)
  - Condition aggravated [Not Recovered/Not Resolved]
  - Device issue [Unknown]
  - Macular oedema [Not Recovered/Not Resolved]
